FAERS Safety Report 22586672 (Version 1)
Quarter: 2023Q2

REPORT INFORMATION
  Report Type: Spontaneous
  Country: US (occurrence: US)
  Receive Date: 20230611
  Receipt Date: 20230611
  Transmission Date: 20230722
  Serious: No
  Sender: FDA-Public Use
  Company Number: US-PERRIGO-23US003279

PATIENT
  Age: 84 Year
  Sex: Male
  Weight: 56.689 kg

DRUGS (4)
  1. DICLOFENAC SODIUM [Suspect]
     Active Substance: DICLOFENAC SODIUM
     Indication: Arthralgia
     Dosage: 20 MG, QD
     Route: 061
     Dates: start: 202103
  2. LIDOCAINE [Concomitant]
     Active Substance: LIDOCAINE
     Indication: Arthralgia
     Dosage: QHS
     Route: 065
     Dates: start: 202109
  3. ASPIRIN [Concomitant]
     Active Substance: ASPIRIN
     Indication: Routine health maintenance
     Dosage: TWO TABLETS, DAILY
     Route: 065
     Dates: start: 2017
  4. ASPIRIN [Concomitant]
     Active Substance: ASPIRIN
     Indication: Prophylaxis

REACTIONS (4)
  - Drug effect less than expected [Unknown]
  - Product administered at inappropriate site [Unknown]
  - Incorrect product administration duration [Unknown]
  - Wrong technique in product usage process [Unknown]

NARRATIVE: CASE EVENT DATE: 20210301
